FAERS Safety Report 21350777 (Version 3)
Quarter: 2022Q4

REPORT INFORMATION
  Report Type: Spontaneous
  Country: US (occurrence: US)
  Receive Date: 20220919
  Receipt Date: 20221005
  Transmission Date: 20230113
  Serious: No
  Sender: FDA-Public Use
  Company Number: US-JNJFOC-20220917790

PATIENT
  Age: 8 Decade
  Sex: Female

DRUGS (1)
  1. IMODIUM MULTI-SYMPTOM RELIEF [Suspect]
     Active Substance: DIMETHICONE\LOPERAMIDE HYDROCHLORIDE
     Indication: Irritable bowel syndrome
     Dosage: 2-3 TABLETS AT A TIME 1-2X A DAY
     Route: 048
     Dates: start: 2021

REACTIONS (1)
  - Drug ineffective [Unknown]
